FAERS Safety Report 6976100-9 (Version None)
Quarter: 2010Q3

REPORT INFORMATION
  Report Type: 
  Country: None (occurrence: None)
  Receive Date: 20100910
  Receipt Date: 20100831
  Transmission Date: 20110219
  Serious: Yes (Hospitalization, Other)
  Sender: FDA-Public Use
  Company Number: JP-PFIZER INC-2010097610

PATIENT
  Age: 70 Year
  Sex: Male

DRUGS (4)
  1. VFEND [Suspect]
     Indication: BRONCHOPULMONARY ASPERGILLOSIS
     Dosage: 200 MG, 2X/DAY
     Route: 042
     Dates: start: 20100707, end: 20100720
  2. VFEND [Suspect]
     Dosage: 150 MG, 2X/DAY
     Route: 048
     Dates: start: 20100721, end: 20100803
  3. URINORM [Suspect]
     Indication: HYPERURICAEMIA
     Dosage: 50 MG, 1X/DAY
     Route: 048
     Dates: start: 20090904, end: 20100803
  4. TAKEPRON [Suspect]
     Indication: GASTRIC ULCER
     Dosage: 15 MG, 1X/DAY
     Route: 048
     Dates: start: 20090904, end: 20100803

REACTIONS (2)
  - INAPPROPRIATE ANTIDIURETIC HORMONE SECRETION [None]
  - LIVER DISORDER [None]
